FAERS Safety Report 24577359 (Version 1)
Quarter: 2024Q4

REPORT INFORMATION
  Report Type: Spontaneous
  Country: US (occurrence: US)
  Receive Date: 20241104
  Receipt Date: 20241104
  Transmission Date: 20250115
  Serious: No
  Sender: PERRIGO
  Company Number: US-PERRIGO-24US002603

PATIENT
  Sex: Female

DRUGS (1)
  1. POLYETHYLENE GLYCOL 3350 [Suspect]
     Active Substance: POLYETHYLENE GLYCOL 3350
     Indication: Product used for unknown indication
     Dosage: 3 CAPFULS, UNKNOWN
     Route: 048

REACTIONS (5)
  - Nausea [Unknown]
  - Muscle spasms [Unknown]
  - Chills [Unknown]
  - Diarrhoea [Unknown]
  - Overdose [Unknown]
